FAERS Safety Report 6722572-4 (Version None)
Quarter: 2010Q2

REPORT INFORMATION
  Report Type: 
  Country: None (occurrence: None)
  Receive Date: 20100512
  Receipt Date: 20100430
  Transmission Date: 20101027
  Serious: Yes (Hospitalization, Other)
  Sender: FDA-Public Use
  Company Number: JP-PFIZER INC-2010057337

PATIENT
  Age: 62 Year
  Sex: Female

DRUGS (2)
  1. CABASER [Suspect]
     Indication: PARKINSON'S DISEASE
     Dosage: 2 MG, 1X/DAY
     Route: 048
     Dates: start: 20100402
  2. AZULFIDINE [Suspect]

REACTIONS (2)
  - ECZEMA [None]
  - OEDEMA [None]
